FAERS Safety Report 15853434 (Version 1)
Quarter: 2019Q1

REPORT INFORMATION
  Report Type: Spontaneous
  Country: US (occurrence: US)
  Receive Date: 20190120
  Receipt Date: 20190120
  Transmission Date: 20190417
  Serious: Yes (Death)
  Sender: FDA-Public Use
  Company Number: None

PATIENT
  Age: 53 Year
  Sex: Male
  Weight: 99 kg

DRUGS (1)
  1. AMLODIPINE-VALSARTAN 10-320 MG [Suspect]
     Active Substance: AMLODIPINE\VALSARTAN
     Indication: HYPERTENSION
     Dosage: ?          QUANTITY:30 TABLET(S);?
     Route: 048
     Dates: start: 20180802, end: 20181113

REACTIONS (2)
  - Myocardial infarction [None]
  - Product substitution [None]

NARRATIVE: CASE EVENT DATE: 20181113
